FAERS Safety Report 8512554-4 (Version None)
Quarter: 2012Q3

REPORT INFORMATION
  Report Type: 
  Country: None (occurrence: None)
  Receive Date: 20120716
  Receipt Date: 20120706
  Transmission Date: 20120928
  Serious: Yes (Hospitalization, Other)
  Sender: FDA-Public Use
  Company Number: JP-CELGENEUS-087-50794-12063668

PATIENT
  Sex: Female
  Weight: 56 kg

DRUGS (23)
  1. VIDAZA [Suspect]
     Dosage: 75 MILLIGRAM/SQ. METER
     Route: 041
     Dates: start: 20120416, end: 20120423
  2. OVULANZE [Concomitant]
     Route: 065
     Dates: start: 20111115
  3. SOLU-CORTEF [Concomitant]
     Route: 065
     Dates: start: 20120107
  4. POLARAMINE [Concomitant]
     Route: 065
     Dates: start: 20120206, end: 20120212
  5. PROMACTA [Concomitant]
     Route: 065
     Dates: start: 20111115
  6. DIFLUCAN [Concomitant]
     Route: 065
     Dates: start: 20111115
  7. VIDAZA [Suspect]
     Dosage: 75 MILLIGRAM/SQ. METER
     Route: 041
     Dates: start: 20120529, end: 20120604
  8. SOLU-CORTEF [Concomitant]
     Route: 065
     Dates: start: 20120206
  9. POLARAMINE [Concomitant]
     Route: 065
     Dates: start: 20120110, end: 20120111
  10. CELESTAMINE TAB [Concomitant]
     Route: 065
     Dates: start: 20120313
  11. VIDAZA [Suspect]
     Dosage: 75 MILLIGRAM/SQ. METER
     Route: 041
     Dates: start: 20120305, end: 20120311
  12. SOLU-CORTEF [Concomitant]
     Route: 065
     Dates: start: 20120305, end: 20120305
  13. VIDAZA [Suspect]
     Dosage: 75 MILLIGRAM/SQ. METER
     Route: 041
     Dates: start: 20120206, end: 20120212
  14. PROEMEND [Concomitant]
     Route: 065
     Dates: start: 20120305, end: 20120305
  15. VIDAZA [Suspect]
     Dosage: 75 MILLIGRAM/SQ. METER
     Route: 041
     Dates: start: 20120105, end: 20120111
  16. ALLOPURINOL [Concomitant]
     Route: 065
     Dates: start: 20111115
  17. SOLU-CORTEF [Concomitant]
     Route: 065
     Dates: start: 20120310, end: 20120311
  18. SULFAMETHOXAZOLE AND TRIMETHOPRIM [Concomitant]
     Route: 065
     Dates: start: 20111115
  19. RAMELTEON [Concomitant]
     Route: 065
     Dates: start: 20120105, end: 20120111
  20. NEOPHAGEN [Concomitant]
     Route: 065
     Dates: start: 20120107
  21. LEVOFLOXACIN [Concomitant]
     Route: 065
     Dates: start: 20111115
  22. XYZAL [Concomitant]
     Route: 065
     Dates: start: 20120309
  23. MAGLAX [Concomitant]
     Route: 065
     Dates: start: 20120309

REACTIONS (9)
  - ALANINE AMINOTRANSFERASE INCREASED [None]
  - PLATELET COUNT DECREASED [None]
  - EOSINOPHIL COUNT INCREASED [None]
  - ASPARTATE AMINOTRANSFERASE INCREASED [None]
  - URTICARIA [None]
  - BLOOD ALKALINE PHOSPHATASE INCREASED [None]
  - BLAST CELL COUNT INCREASED [None]
  - GAMMA-GLUTAMYLTRANSFERASE INCREASED [None]
  - WHITE BLOOD CELL COUNT DECREASED [None]
